FAERS Safety Report 4517571-7 (Version None)
Quarter: 2004Q4

REPORT INFORMATION
  Report Type: 
  Country: None (occurrence: None)
  Receive Date: 20041130
  Receipt Date: 20041116
  Transmission Date: 20050328
  Serious: Yes (Life-Threatening)
  Sender: FDA-Public Use
  Company Number: JP-2004-035492

PATIENT
  Age: 74 Year
  Sex: Female

DRUGS (4)
  1. SOTALOL HCL [Suspect]
     Indication: VENTRICULAR TACHYCARDIA
     Dosage: 40 MG 1X/DAY ORAL
     Route: 048
     Dates: start: 20040506, end: 20040531
  2. DIOVAN ^ CIBA-GEIGY^ (VALSARTAN) [Concomitant]
  3. DIGOXIN [Concomitant]
  4. WARFARIN SODIUM [Concomitant]

REACTIONS (1)
  - CARDIO-RESPIRATORY ARREST [None]
